FAERS Safety Report 7792848-0 (Version None)
Quarter: 2011Q4

REPORT INFORMATION
  Report Type: 
  Country: None (occurrence: None)
  Receive Date: 20111003
  Receipt Date: 20110922
  Transmission Date: 20120403
  Serious: Yes (Hospitalization)
  Sender: FDA-Public Use
  Company Number: FI-GLAXOSMITHKLINE-B0746106A

PATIENT
  Sex: Male

DRUGS (6)
  1. ASPIRIN [Concomitant]
  2. RITUXIMAB [Suspect]
     Indication: CHRONIC LYMPHOCYTIC LEUKAEMIA
     Dosage: 1050MG MONTHLY
     Route: 042
     Dates: start: 20110131
  3. SIMVASTATIN [Concomitant]
  4. METOPROLOL TARTRATE [Concomitant]
  5. AMILORIDE HCL AND HYDROCHLOROTHIAZIDE [Concomitant]
  6. CHLORAMBUCIL [Suspect]
     Indication: CHRONIC LYMPHOCYTIC LEUKAEMIA
     Dosage: 20MG PER DAY
     Route: 048
     Dates: start: 20110131

REACTIONS (1)
  - SINUSITIS [None]
